FAERS Safety Report 8327644-9 (Version None)
Quarter: 2012Q2

REPORT INFORMATION
  Report Type: 
  Country: None (occurrence: None)
  Receive Date: 20120502
  Receipt Date: 20120426
  Transmission Date: 20120825
  Serious: Yes (Other)
  Sender: FDA-Public Use
  Company Number: US-BAYER-2012-033889

PATIENT
  Sex: Female

DRUGS (2)
  1. NEXAVAR [Suspect]
     Indication: THYROID CANCER
     Dosage: 200 MG, BID
     Route: 048
     Dates: start: 20120331, end: 20120401
  2. BLOOD PRESSURE MEDICATION (NOS) [Concomitant]

REACTIONS (7)
  - OROPHARYNGEAL DISCOMFORT [None]
  - DYSPHONIA [None]
  - APHAGIA [None]
  - HYPERTENSION [None]
  - OROPHARYNGEAL PAIN [None]
  - WEIGHT DECREASED [None]
  - RASH [None]
